FAERS Safety Report 7351862-X (Version None)
Quarter: 2011Q1

REPORT INFORMATION
  Report Type: 
  Country: None (occurrence: None)
  Receive Date: 20110315
  Receipt Date: 20110302
  Transmission Date: 20110831
  Serious: Yes (Hospitalization, Other)
  Sender: FDA-Public Use
  Company Number: JP-JNJFOC-20110303124

PATIENT
  Age: 42 Year
  Sex: Male

DRUGS (4)
  1. NAUZELIN [Concomitant]
     Dosage: 1 TABLET
     Route: 065
  2. CRAVIT [Suspect]
     Indication: BRONCHITIS
     Route: 048
  3. ALLEGRA [Concomitant]
     Route: 065
  4. TOWATHIEN [Concomitant]
     Route: 065

REACTIONS (4)
  - ANAPHYLACTIC SHOCK [None]
  - MALAISE [None]
  - FALL [None]
  - FLUSHING [None]
